FAERS Safety Report 9911586 (Version 4)
Quarter: 2015Q1

REPORT INFORMATION
  Report Type: Report from Study
  Country: FR (occurrence: FR)
  Receive Date: 20140219
  Receipt Date: 20150209
  Transmission Date: 20150721
  Serious: Yes (Other)
  Sender: FDA-Public Use
  Company Number: PHHO2014FR002117

PATIENT
  Age: 15 Year
  Sex: Female
  Weight: 39 kg

DRUGS (5)
  1. INDOMETHACIN. [Suspect]
     Active Substance: INDOMETHACIN
     Indication: TRANSIENT ISCHAEMIC ATTACK
     Dosage: 25 MG, TID
     Route: 065
     Dates: start: 201003
  2. ACZ885 [Suspect]
     Active Substance: CANAKINUMAB
     Indication: JUVENILE IDIOPATHIC ARTHRITIS
     Dosage: 4 MG/KG, EVERY 4 WEEKS
     Route: 058
     Dates: start: 20131114, end: 20140102
  3. PREDNISONE. [Concomitant]
     Active Substance: PREDNISONE
     Indication: TRANSIENT ISCHAEMIC ATTACK
     Dosage: 10 MG, QD
     Route: 065
     Dates: start: 201111
  4. INDOMETHACIN. [Suspect]
     Active Substance: INDOMETHACIN
     Dosage: 25 MG, TID
     Route: 065
     Dates: start: 20140505
  5. ACZ885 [Suspect]
     Active Substance: CANAKINUMAB
     Dosage: 4 MG/KG, EVERY 4 WEEKS
     Route: 058
     Dates: end: 20140402

REACTIONS (3)
  - Urticaria [Not Recovered/Not Resolved]
  - Gastroenteritis [Unknown]
  - Pyrexia [Not Recovered/Not Resolved]

NARRATIVE: CASE EVENT DATE: 20131227
